FAERS Safety Report 11747625 (Version 3)
Quarter: 2016Q4

REPORT INFORMATION
  Report Type: Spontaneous
  Country: None (occurrence: GR)
  Receive Date: 20151117
  Receipt Date: 20161110
  Transmission Date: 20170206
  Serious: Yes (Hospitalization, Other)
  Sender: FDA-Public Use
  Company Number: GR-MERCK KGAA-1044316

PATIENT

DRUGS (1)
  1. NOVOTHYROX [Suspect]
     Active Substance: LEVOTHYROXINE SODIUM

REACTIONS (3)
  - Drug-induced liver injury [None]
  - Pain [None]
  - Thyroid hormones increased [None]
